FAERS Safety Report 6949963-0 (Version None)
Quarter: 2010Q3

REPORT INFORMATION
  Report Type: 
  Country: None (occurrence: None)
  Receive Date: 20100828
  Receipt Date: 20100119
  Transmission Date: 20110219
  Serious: No
  Sender: FDA-Public Use
  Company Number: US-ABBOTT-10P-163-0620993-00

PATIENT
  Sex: Female
  Weight: 59.02 kg

DRUGS (7)
  1. NIASPAN [Suspect]
     Indication: BLOOD CHOLESTEROL INCREASED
     Route: 048
     Dates: start: 20091215, end: 20100118
  2. ENALAPRIL MALEATE [Suspect]
     Indication: HYPERTENSION
     Dosage: 1 1/2 TAB DAILY
     Route: 048
  3. BYSTOLIC [Concomitant]
     Indication: HYPERTENSION
     Route: 048
  4. GABAPENTIN [Concomitant]
     Indication: NEUROPATHY PERIPHERAL
     Dosage: 1/2 TAB HS
     Route: 048
  5. PLAVIX [Concomitant]
     Indication: STENT PLACEMENT
     Route: 048
  6. FURESOMIDE [Concomitant]
     Indication: PULMONARY OEDEMA
     Route: 048
  7. PRAVASTATIN [Concomitant]
     Indication: BLOOD CHOLESTEROL INCREASED
     Dosage: QOD
     Route: 048

REACTIONS (5)
  - DIZZINESS [None]
  - DRUG DOSE OMISSION [None]
  - INSOMNIA [None]
  - MALAISE [None]
  - NERVOUSNESS [None]
